FAERS Safety Report 7180363-7 (Version None)
Quarter: 2010Q4

REPORT INFORMATION
  Report Type: 
  Country: None (occurrence: None)
  Receive Date: 20101221
  Receipt Date: 20101214
  Transmission Date: 20110411
  Serious: Yes (Death)
  Sender: FDA-Public Use
  Company Number: A0900530A

PATIENT
  Sex: Female

DRUGS (5)
  1. COMBIVIR [Suspect]
     Indication: HIV INFECTION
     Dosage: 2TAB PER DAY
     Dates: start: 20100801
  2. KALETRA [Suspect]
     Indication: HIV INFECTION
     Dosage: 4TAB PER DAY
     Dates: start: 20100801, end: 20101012
  3. KALETRA [Suspect]
     Dosage: 6TAB PER DAY
     Dates: start: 20101012
  4. RETROVIR [Suspect]
     Indication: HIV INFECTION
     Dosage: 1MGKH PER DAY
     Dates: start: 20101106, end: 20101106
  5. RETROVIR [Suspect]
     Dosage: 2MGKH PER DAY
     Dates: start: 20101106, end: 20101106

REACTIONS (2)
  - DEATH NEONATAL [None]
  - DRUG EXPOSURE DURING PREGNANCY [None]
